FAERS Safety Report 9958794 (Version 1)
Quarter: 2014Q1

REPORT INFORMATION
  Report Type: Spontaneous
  Country: US (occurrence: None)
  Receive Date: 20140227
  Receipt Date: 20140227
  Transmission Date: 20141002
  Serious: Yes (Other)
  Sender: FDA-Public Use
  Company Number: AUR-APL-2014-02136

PATIENT
  Age: 57 Year
  Sex: Female

DRUGS (1)
  1. ATENOLOL (ATENOLOL) [Suspect]
     Indication: HYPERTENSION
     Dosage: 100 MG 1 IN 1 D, UNKNOWN

REACTIONS (2)
  - Hepatitis acute [None]
  - Hepatic cirrhosis [None]
